FAERS Safety Report 19739164 (Version 1)
Quarter: 2021Q3

REPORT INFORMATION
  Report Type: Spontaneous
  Country: IN (occurrence: IN)
  Receive Date: 20210824
  Receipt Date: 20210824
  Transmission Date: 20211014
  Serious: Yes (Death, Hospitalization)
  Sender: FDA-Public Use
  Company Number: IN-PFIZER INC-2017073086

PATIENT
  Age: 48 Year
  Sex: Female

DRUGS (2)
  1. PALBACE [Suspect]
     Active Substance: PALBOCICLIB
     Indication: BREAST CANCER METASTATIC
     Dosage: 125 MG, CYCLIC (ONCE A DAY, 3 WEEKS ON AND 1 WEEK OFF ALONG WITH FOOD)
     Route: 048
     Dates: start: 20161230
  2. LETROZOLE. [Concomitant]
     Active Substance: LETROZOLE
     Dosage: 2.5 MG, 1X/DAY
     Route: 048

REACTIONS (3)
  - COVID-19 [Fatal]
  - Pleural effusion [Unknown]
  - Pyrexia [Unknown]
